FAERS Safety Report 8554214 (Version 8)
Quarter: 2012Q4

REPORT INFORMATION
  Report Type: Report from Study
  Country: ES (occurrence: ES)
  Receive Date: 20120509
  Receipt Date: 20121228
  Transmission Date: 20130627
  Serious: Yes (Hospitalization)
  Sender: FDA-Public Use
  Company Number: ES-GLAXOSMITHKLINE-B0794684A

PATIENT
  Age: 68 Year
  Sex: Male
  Weight: 87.8 kg

DRUGS (17)
  1. RETIGABINE [Suspect]
     Indication: PARTIAL SEIZURES
     Dosage: 200MG Three times per day
     Route: 048
     Dates: start: 20060731
  2. CARBAMAZEPINE [Concomitant]
  3. PREGABALIN [Concomitant]
  4. RABEPRAZOLE [Concomitant]
  5. ATORVASTATIN [Concomitant]
  6. FILGRASTIM [Concomitant]
     Indication: NEUTROPENIA
     Dates: start: 20120502, end: 20120503
  7. PARACETAMOL [Concomitant]
     Indication: MALAISE
     Dates: start: 20120503
  8. MEROPENEM [Concomitant]
     Indication: NEUTROPENIA
     Dates: start: 20120503
  9. VANCOMYCIN [Concomitant]
     Indication: NEUTROPENIA
     Dates: start: 20120506, end: 20120507
  10. LEVETIRACETAM [Concomitant]
     Dates: start: 20120330
  11. ESOMEPRAZOLE [Concomitant]
     Indication: PROPHYLAXIS
     Dates: start: 20120403
  12. LEVOFLOXACIN [Concomitant]
     Indication: PYREXIA
     Dates: start: 20120408, end: 20120418
  13. ACENOCOUMAROL [Concomitant]
     Dates: start: 20120403, end: 20120409
  14. SUCRALFATE [Concomitant]
     Indication: PROPHYLAXIS
     Dates: start: 20120407, end: 20120414
  15. EUTIROX [Concomitant]
     Dates: start: 20120430
  16. LORAZEPAM [Concomitant]
     Indication: INSOMNIA
     Dates: start: 20120501
  17. LACTULOSE [Concomitant]
     Indication: CONSTIPATION
     Dates: start: 20120501

REACTIONS (3)
  - Atrial fibrillation [Recovered/Resolved]
  - Pulmonary embolism [Recovered/Resolved]
  - Lymphoma [Recovered/Resolved]
